FAERS Safety Report 7095702-5 (Version None)
Quarter: 2010Q4

REPORT INFORMATION
  Report Type: 
  Country: None (occurrence: None)
  Receive Date: 20101111
  Receipt Date: 20101101
  Transmission Date: 20110411
  Serious: Yes (Death, Hospitalization)
  Sender: FDA-Public Use
  Company Number: PHHY2009US66488

PATIENT
  Sex: Female

DRUGS (2)
  1. EXJADE [Suspect]
     Dosage: 1500 MG, QD
     Route: 048
  2. EXJADE [Suspect]
     Dosage: 750 MG, QD
     Route: 048

REACTIONS (4)
  - DEATH [None]
  - DIARRHOEA [None]
  - NAUSEA [None]
  - VOMITING [None]
